FAERS Safety Report 11755582 (Version 1)
Quarter: 2015Q4

REPORT INFORMATION
  Report Type: Spontaneous
  Country: US (occurrence: US)
  Receive Date: 20151119
  Receipt Date: 20151119
  Transmission Date: 20160304
  Serious: Yes (Death)
  Sender: FDA-Public Use
  Company Number: US-009507513-1511USA009959

PATIENT
  Age: 39 Year
  Sex: Male

DRUGS (1)
  1. EMEND [Suspect]
     Active Substance: APREPITANT
     Dosage: 150 MG, UNSPECIFIED
     Dates: start: 20150715

REACTIONS (1)
  - Death [Fatal]

NARRATIVE: CASE EVENT DATE: 20150910
